FAERS Safety Report 10437129 (Version 1)
Quarter: 2014Q3

REPORT INFORMATION
  Report Type: Spontaneous
  Country: US (occurrence: US)
  Receive Date: 20140908
  Receipt Date: 20140908
  Transmission Date: 20150326
  Serious: Yes (Other)
  Sender: FDA-Public Use
  Company Number: US-BRISTOL-MYERS SQUIBB COMPANY-20323382

PATIENT
  Age: 15 Year
  Sex: Female
  Weight: 53.97 kg

DRUGS (1)
  1. ABILIFY [Suspect]
     Active Substance: ARIPIPRAZOLE
     Dosage: 2 MG?5MG?10 MG
     Dates: start: 20130926

REACTIONS (1)
  - Suicidal ideation [Recovered/Resolved]
